FAERS Safety Report 12843238 (Version 1)
Quarter: 2016Q4

REPORT INFORMATION
  Report Type: Spontaneous
  Country: FR (occurrence: FR)
  Receive Date: 20161013
  Receipt Date: 20161013
  Transmission Date: 20170207
  Serious: Yes (Hospitalization)
  Sender: FDA-Public Use
  Company Number: FR-GLAXOSMITHKLINE-FR2016GSK145525

PATIENT
  Age: 50 Year
  Sex: Male

DRUGS (12)
  1. SERESTA [Concomitant]
     Active Substance: OXAZEPAM
  2. MALOCIDE [Concomitant]
     Active Substance: PYRIMETHAMINE
  3. ISENTRESS [Concomitant]
     Active Substance: RALTEGRAVIR POTASSIUM
  4. KARDEGIC [Concomitant]
     Active Substance: ASPIRIN LYSINE
  5. WELLVONE [Concomitant]
     Active Substance: ATOVAQUONE
  6. PREZISTA [Suspect]
     Active Substance: DARUNAVIR ETHANOLATE
     Indication: HIV INFECTION
     Dosage: 800 MG, 1D
     Route: 048
     Dates: start: 20160906, end: 20160920
  7. NORVIR [Suspect]
     Active Substance: RITONAVIR
     Indication: HIV INFECTION
     Dosage: 100 MG, 1D
     Route: 048
     Dates: start: 20160906, end: 20160920
  8. LEDERFOLINE [Concomitant]
     Active Substance: LEUCOVORIN CALCIUM
  9. KIVEXA [Suspect]
     Active Substance: ABACAVIR SULFATE\LAMIVUDINE
     Indication: HIV INFECTION
     Dosage: 1 UNK, 1D
     Route: 048
     Dates: start: 20160906, end: 20160920
  10. ADIAZINE [Concomitant]
     Active Substance: SULFADIAZINE
  11. TRUVADA [Concomitant]
     Active Substance: EMTRICITABINE\TENOFOVIR DISOPROXIL FUMARATE
  12. IMOVANE [Concomitant]
     Active Substance: ZOPICLONE

REACTIONS (2)
  - Pruritus [Recovered/Resolved]
  - Urticaria [Recovered/Resolved]

NARRATIVE: CASE EVENT DATE: 20160920
